FAERS Safety Report 23543610 (Version 3)
Quarter: 2024Q1

REPORT INFORMATION
  Report Type: Report from Study
  Country: US (occurrence: US)
  Receive Date: 20240220
  Receipt Date: 20240315
  Transmission Date: 20240410
  Serious: Yes (Hospitalization, Other)
  Sender: FDA-Public Use
  Company Number: US-TAKEDA-2024TUS015540

PATIENT
  Sex: Female

DRUGS (1)
  1. MARIBAVIR [Suspect]
     Active Substance: MARIBAVIR
     Indication: Plasma cell myeloma
     Dosage: 2 DOSAGE FORM, BID
     Route: 048
     Dates: start: 20240212

REACTIONS (6)
  - Femur fracture [Unknown]
  - Hip fracture [Unknown]
  - Dysgeusia [Unknown]
  - Taste disorder [Unknown]
  - Pain [Unknown]
  - Product use in unapproved indication [Unknown]
